FAERS Safety Report 9057517 (Version 1)
Quarter: 2013Q1

REPORT INFORMATION
  Report Type: Spontaneous
  Country: US (occurrence: None)
  Receive Date: 20130204
  Receipt Date: 20130204
  Transmission Date: 20140127
  Serious: Yes (Hospitalization)
  Sender: FDA-Public Use
  Company Number: None

PATIENT
  Age: 72 Year
  Sex: Male
  Weight: 90 kg

DRUGS (13)
  1. DABIGATRAN 150MG BOEHRINGER INGELHEIM [Suspect]
     Indication: ATRIAL FIBRILLATION
     Route: 048
     Dates: start: 20121005, end: 20130125
  2. ASPIRIN [Suspect]
     Route: 048
  3. SILDENAFIL 100 MG [Concomitant]
  4. METFORMIN 1,000 MG [Concomitant]
  5. LISPRO -HUMALOG- 9 UNITS [Concomitant]
  6. BRIMONIDINE OPHTHALMIC 0.15% [Concomitant]
  7. SIMVASTATIN 40 MG [Concomitant]
  8. SPIRONOLACTONE 12.5 MG [Concomitant]
  9. INSULIN GLARGINE -LANTUS SOLOSTAR PEN- 18 UNITS [Concomitant]
  10. OXYBUTYNIN 15 MG [Concomitant]
  11. SOTALOL 120 MG [Concomitant]
  12. AMLODIPNE 5 MG [Concomitant]
  13. LISINOPRIL 40 MG [Concomitant]

REACTIONS (6)
  - Haemorrhage intracranial [None]
  - Subdural haematoma [None]
  - Hyperglycaemia [None]
  - Mental status changes [None]
  - Head injury [None]
  - Blood creatinine increased [None]
